FAERS Safety Report 8279011-4 (Version None)
Quarter: 2012Q2

REPORT INFORMATION
  Report Type: 
  Country: None (occurrence: None)
  Receive Date: 20120412
  Receipt Date: 20110422
  Transmission Date: 20120825
  Serious: No
  Sender: FDA-Public Use
  Company Number: US-ASTRAZENECA-2011SE23422

PATIENT
  Age: 78 Year
  Sex: Female
  Weight: 64.4 kg

DRUGS (6)
  1. LISINOPRIL [Concomitant]
  2. SIMVASTATIN [Concomitant]
  3. CALCIUM WITH D [Concomitant]
  4. VITAMIN [Concomitant]
  5. ASPIRIN [Concomitant]
  6. NEXIUM [Suspect]
     Indication: GASTROOESOPHAGEAL REFLUX DISEASE
     Route: 048
     Dates: start: 20110420

REACTIONS (2)
  - DRUG INEFFECTIVE [None]
  - THERAPEUTIC RESPONSE UNEXPECTED [None]
